FAERS Safety Report 7455218-0 (Version None)
Quarter: 2011Q2

REPORT INFORMATION
  Report Type: 
  Country: None (occurrence: None)
  Receive Date: 20110503
  Receipt Date: 20110419
  Transmission Date: 20111010
  Serious: Yes (Other)
  Sender: FDA-Public Use
  Company Number: CA-JNJFOC-20110409116

PATIENT
  Sex: Male
  Weight: 137 kg

DRUGS (9)
  1. REMICADE [Suspect]
     Indication: CROHN'S DISEASE
     Route: 042
  2. TRAMADOL HCL [Concomitant]
     Route: 065
  3. OXYCODONE [Concomitant]
     Route: 065
  4. GABAPENTIN [Concomitant]
     Route: 065
  5. ALL OTHER THERAPEUTIC PRODUCTS [Concomitant]
     Route: 065
  6. METFORMIN HYDROCHLORIDE [Concomitant]
     Route: 065
  7. CIPRO [Concomitant]
     Route: 065
  8. QUESTRAN [Concomitant]
     Route: 065
  9. ALTACE [Concomitant]
     Route: 065

REACTIONS (1)
  - NEUROPATHIC ARTHROPATHY [None]
